FAERS Safety Report 15650793 (Version 1)
Quarter: 2018Q4

REPORT INFORMATION
  Report Type: Spontaneous
  Country: US (occurrence: US)
  Receive Date: 20181123
  Receipt Date: 20181123
  Transmission Date: 20190205
  Serious: No
  Sender: FDA-Public Use
  Company Number: US-TEVA-2018-US-978710

PATIENT
  Sex: Female

DRUGS (2)
  1. GABAPENTIN TEVA [Suspect]
     Active Substance: GABAPENTIN
  2. GABAPENTIN TEVA [Suspect]
     Active Substance: GABAPENTIN

REACTIONS (4)
  - Abdominal pain upper [Unknown]
  - Nausea [Unknown]
  - Diarrhoea [Unknown]
  - Therapy change [Unknown]
